FAERS Safety Report 6006789-2 (Version None)
Quarter: 2008Q4

REPORT INFORMATION
  Report Type: 
  Country: None (occurrence: None)
  Receive Date: 20081217
  Receipt Date: 20081210
  Transmission Date: 20090506
  Serious: Yes (Death)
  Sender: FDA-Public Use
  Company Number: JP-AVENTIS-200713018JP

PATIENT
  Age: 83 Year
  Sex: Male
  Weight: 44.5 kg

DRUGS (10)
  1. TAXOTERE [Suspect]
     Route: 041
     Dates: start: 20070822, end: 20071016
  2. GEMZAR [Suspect]
  3. ZOMETA [Concomitant]
     Dates: start: 20070726, end: 20071023
  4. ASPIRIN [Concomitant]
     Route: 048
     Dates: start: 20070801, end: 20071105
  5. PANALDINE [Concomitant]
     Route: 048
     Dates: start: 20070801, end: 20071105
  6. TENORMIN [Concomitant]
     Route: 048
     Dates: start: 20070703, end: 20071105
  7. MS CONTIN [Concomitant]
     Route: 048
     Dates: start: 20070723, end: 20071105
  8. HARNAL [Concomitant]
     Route: 048
     Dates: start: 20070717, end: 20071105
  9. KYTRIL                             /01178101/ [Concomitant]
     Dates: start: 20070815, end: 20071016
  10. DECADRON [Concomitant]
     Dates: start: 20070815, end: 20071016

REACTIONS (1)
  - INTERSTITIAL LUNG DISEASE [None]
